FAERS Safety Report 9436954 (Version 2)
Quarter: 2013Q4

REPORT INFORMATION
  Report Type: Spontaneous
  Country: IT (occurrence: IT)
  Receive Date: 20130802
  Receipt Date: 20131014
  Transmission Date: 20140711
  Serious: Yes (Hospitalization)
  Sender: FDA-Public Use
  Company Number: IT-BRISTOL-MYERS SQUIBB COMPANY-19154798

PATIENT
  Age: 91 Year
  Sex: Female

DRUGS (4)
  1. COUMADIN TABS 5 MG [Suspect]
     Indication: ATRIAL FIBRILLATION
     Dosage: 02-JUL-2013
     Route: 048
     Dates: start: 20130516
  2. BISOPROLOL HEMIFUMARATE [Concomitant]
     Indication: HYPERTENSION
     Route: 048
  3. VALSARTAN [Concomitant]
     Indication: HYPERTENSION
     Route: 048
  4. LASIX [Concomitant]
     Indication: HYPERTENSION
     Dosage: 25 MG TAB
     Route: 048

REACTIONS (5)
  - Syncope [Unknown]
  - Overdose [Recovered/Resolved]
  - Head injury [Unknown]
  - Left ventricular failure [Unknown]
  - International normalised ratio increased [Recovered/Resolved]
